FAERS Safety Report 9853515 (Version 3)
Quarter: 2014Q1

REPORT INFORMATION
  Report Type: Spontaneous
  Country: JP (occurrence: JP)
  Receive Date: 20140129
  Receipt Date: 20140314
  Transmission Date: 20141002
  Serious: Yes (Hospitalization, Other)
  Sender: FDA-Public Use
  Company Number: JP-B.I. PHARMACEUTICALS,INC./RIDGEFIELD-2014-BI-03998NB

PATIENT
  Age: 67 Year
  Sex: Male
  Weight: 68.2 kg

DRUGS (11)
  1. PRAZAXA [Suspect]
     Indication: ATRIAL FIBRILLATION
     Dosage: 220 MG
     Route: 048
  2. PRAZAXA [Suspect]
     Dosage: 300 MG
     Route: 048
     Dates: start: 20140129
  3. PLAVIX [Suspect]
     Indication: TRANSIENT ISCHAEMIC ATTACK
     Dosage: 75 MG
     Route: 048
     Dates: end: 20140127
  4. BAYASPIRIN / ASPIRIN [Concomitant]
     Dosage: 100 MG
     Route: 048
     Dates: start: 20140128
  5. CADUET NO.4 / AMLODIPINE BESILATE_ATORVASTATIN CALCIUM HYDRATE COMBINE [Concomitant]
     Indication: HYPERTENSION
     Dosage: DAILY DOSE: 1DF
     Route: 048
  6. BEZATOL SR / BEZAFIBRATE [Concomitant]
     Indication: DYSLIPIDAEMIA
     Dosage: 200 MG
     Route: 048
  7. RENIVACE / ENALAPRIL MALEATE [Concomitant]
     Indication: HYPERTENSION
     Dosage: 5 MG
     Route: 048
  8. TENORMIN / ATENOLOL [Concomitant]
     Indication: ATRIAL FIBRILLATION
     Dosage: 50 MG
     Route: 048
  9. TAMBOCOR / FLECAINIDE ACETATE [Concomitant]
     Indication: ATRIAL FIBRILLATION
     Dosage: 50 MG
     Route: 048
  10. NEXIUM / ESOMEPRAZOLE MAGNESIUM HYDRATE [Concomitant]
     Dosage: 10 MG
     Route: 048
  11. ADOAIR / SALMETEROL XINAFOATE_FLUTICASONE PROPIONATE [Concomitant]
     Indication: ASTHMA
     Route: 055

REACTIONS (3)
  - Transient ischaemic attack [Recovered/Resolved]
  - Cerebral infarction [Recovered/Resolved]
  - Drug ineffective [Unknown]
